FAERS Safety Report 16912398 (Version 1)
Quarter: 2019Q4

REPORT INFORMATION
  Report Type: Spontaneous
  Country: FR (occurrence: FR)
  Receive Date: 20191014
  Receipt Date: 20191014
  Transmission Date: 20200122
  Serious: Yes (Other)
  Sender: FDA-Public Use
  Company Number: FR-TEVA-2019-FR-1120697

PATIENT
  Age: 70 Year
  Sex: Female

DRUGS (8)
  1. SERESTA [Concomitant]
     Active Substance: OXAZEPAM
  2. MOMETASONE (FUROATE DE) [Suspect]
     Active Substance: MOMETASONE FUROATE
     Dosage: 100 MICROGRAM 1 DAYS
     Route: 048
     Dates: start: 20180305
  3. ACETYLCYSTEINE. [Suspect]
     Active Substance: ACETYLCYSTEINE
     Indication: BRONCHITIS
     Dosage: 400 MG 1 DAYS
     Route: 048
     Dates: start: 20180305, end: 20180309
  4. LEVOTHYROX [Concomitant]
     Active Substance: LEVOTHYROXINE
  5. PREDNISONE. [Suspect]
     Active Substance: PREDNISONE
     Indication: BRONCHITIS
     Dosage: 40 MG 1 DAYS
     Route: 048
     Dates: start: 20180305, end: 20180307
  6. OXOMEMAZINE [Suspect]
     Active Substance: OXOMEMAZINE
     Indication: BRONCHITIS
     Dosage: 160 MG 1 DAYS
     Route: 048
     Dates: start: 20180305, end: 20180310
  7. AMOXICILLINE [Suspect]
     Active Substance: AMOXICILLIN
     Indication: BRONCHITIS
     Dosage: 3 G 1 DAYS
     Route: 048
     Dates: start: 20180305, end: 20180310
  8. PARACETAMOL [Suspect]
     Active Substance: ACETAMINOPHEN
     Indication: BRONCHITIS
     Dosage: 3 G  1 DAYS
     Route: 048
     Dates: start: 20180305, end: 20180310

REACTIONS (4)
  - Pruritus [Recovered/Resolved]
  - Rash [Recovered/Resolved]
  - Skin burning sensation [Recovered/Resolved]
  - Rash maculo-papular [Recovered/Resolved]

NARRATIVE: CASE EVENT DATE: 20190309
